FAERS Safety Report 17135351 (Version 3)
Quarter: 2020Q1

REPORT INFORMATION
  Report Type: Spontaneous
  Country: US (occurrence: US)
  Receive Date: 20191210
  Receipt Date: 20200108
  Transmission Date: 20200409
  Serious: No
  Sender: FDA-Public Use
  Company Number: US-PFIZER INC-2019531150

PATIENT
  Sex: Female

DRUGS (1)
  1. AMLODIPINE BESILATE [Suspect]
     Active Substance: AMLODIPINE BESYLATE
     Dosage: UNK

REACTIONS (5)
  - Speech disorder [Unknown]
  - Choking sensation [Unknown]
  - Rhinorrhoea [Unknown]
  - Dyspnoea [Unknown]
  - Increased viscosity of upper respiratory secretion [Unknown]
